FAERS Safety Report 4359148-2 (Version None)
Quarter: 2004Q2

REPORT INFORMATION
  Report Type: 
  Country: None (occurrence: None)
  Receive Date: 20040512
  Receipt Date: 20040428
  Transmission Date: 20050107
  Serious: Yes (Other)
  Sender: FDA-Public Use
  Company Number: US_0405102708

PATIENT
  Sex: Female
  Weight: 55 kg

DRUGS (5)
  1. HUMALOG [Suspect]
     Dosage: UNK
     Route: 065
  2. INSULIN [Suspect]
     Dosage: UNK
     Route: 065
  3. HUMULIN N [Suspect]
     Dosage: UNK
     Route: 065
  4. HUMULIN R [Suspect]
     Dosage: UNK
     Route: 065
  5. INSULIN GLARGINE [Concomitant]

REACTIONS (5)
  - DIABETIC RETINOPATHY [None]
  - HIP FRACTURE [None]
  - OSTEOPOROSIS [None]
  - QUADRUPLE VESSEL BYPASS GRAFT [None]
  - UPPER LIMB FRACTURE [None]
